FAERS Safety Report 20491027 (Version 1)
Quarter: 2022Q1

REPORT INFORMATION
  Report Type: Spontaneous
  Country: US (occurrence: None)
  Receive Date: 20220218
  Receipt Date: 20220218
  Transmission Date: 20220423
  Serious: Yes (Hospitalization)
  Sender: FDA-Public Use
  Company Number: None

PATIENT
  Age: 70 Year
  Sex: Female
  Weight: 41.7 kg

DRUGS (10)
  1. BAMLANIVIMAB [Suspect]
     Active Substance: BAMLANIVIMAB
     Indication: COVID-19
     Dosage: OTHER FREQUENCY : ONCE;?
     Route: 042
     Dates: start: 20210111, end: 20210111
  2. ACETAMINOPHEN [Concomitant]
     Active Substance: ACETAMINOPHEN
     Dates: start: 20210107
  3. ACETAMINOPHEN\CODEINE PHOSPHATE [Concomitant]
     Active Substance: ACETAMINOPHEN\CODEINE PHOSPHATE
     Dates: start: 20201203
  4. AMLODIPINE BESYLATE [Concomitant]
     Active Substance: AMLODIPINE BESYLATE
     Dates: start: 20200618, end: 20210610
  5. ATORVASTATIN CALCIUM [Concomitant]
     Active Substance: ATORVASTATIN CALCIUM
     Dates: start: 20200618, end: 20210610
  6. Centrum Silver Vitamin [Concomitant]
     Dates: start: 20180713
  7. Codeine Phosphate/guaifenesin Syrp [Concomitant]
     Dates: start: 20210107, end: 20210401
  8. GINKGO [Concomitant]
     Active Substance: GINKGO
     Dates: start: 20180713
  9. IBUPROFEN [Concomitant]
     Active Substance: IBUPROFEN
     Dates: start: 20201203
  10. B-complex with C [Concomitant]
     Dates: start: 20180713

REACTIONS (2)
  - Hypoxia [None]
  - COVID-19 pneumonia [None]

NARRATIVE: CASE EVENT DATE: 20210112
